FAERS Safety Report 9406490 (Version 1)
Quarter: 2013Q3

REPORT INFORMATION
  Report Type: Spontaneous
  Country: CN (occurrence: CN)
  Receive Date: 20130718
  Receipt Date: 20130718
  Transmission Date: 20140515
  Serious: Yes (Other)
  Sender: FDA-Public Use
  Company Number: CN-009507513-1307CHN006377

PATIENT
  Age: 20 Year
  Sex: Female
  Weight: 51 kg

DRUGS (1)
  1. TIENAM [Suspect]
     Indication: INFECTION
     Dosage: 1 G, Q12H
     Route: 041
     Dates: start: 20120913, end: 20120917

REACTIONS (1)
  - Haematuria [Recovered/Resolved]
